FAERS Safety Report 5208371-3 (Version None)
Quarter: 2006Q4

REPORT INFORMATION
  Report Type: 
  Country: None (occurrence: None)
  Receive Date: 20061026
  Receipt Date: 20060727
  Transmission Date: 20070319
  Serious: No
  Sender: FDA-Public Use
  Company Number: 2006094756

PATIENT
  Age: 73 Year
  Sex: Male
  Weight: 94.8018 kg

DRUGS (6)
  1. LYRICA [Suspect]
     Indication: NEURALGIA
     Dosage: 50 MG (50 MG,1 IN 1 D),ORAL
     Route: 048
     Dates: start: 20060701, end: 20060701
  2. PLAVIX [Concomitant]
  3. ZOCOR [Concomitant]
  4. ATENOLOL [Concomitant]
  5. METFORMIN HCL [Concomitant]
  6. AMARYL [Concomitant]

REACTIONS (3)
  - FEELING ABNORMAL [None]
  - PAIN [None]
  - SOMNOLENCE [None]
